FAERS Safety Report 6802906-2 (Version None)
Quarter: 2010Q2

REPORT INFORMATION
  Report Type: 
  Country: None (occurrence: None)
  Receive Date: 20100628
  Receipt Date: 20100614
  Transmission Date: 20101027
  Serious: Yes (Hospitalization)
  Sender: FDA-Public Use
  Company Number: PHHY2010JP40705

PATIENT
  Age: 2 Year
  Sex: Female

DRUGS (3)
  1. FLUVASTATIN [Suspect]
     Dosage: 60 MG DAILY
     Route: 048
     Dates: start: 20100613
  2. GOODMIN [Suspect]
     Dosage: UNK
     Route: 048
     Dates: start: 20100613
  3. LENDORMIN [Suspect]
     Dosage: UNK
     Route: 048
     Dates: start: 20100613

REACTIONS (4)
  - ACCIDENTAL EXPOSURE [None]
  - DIZZINESS [None]
  - EYELID OEDEMA [None]
  - SOMNOLENCE [None]
